FAERS Safety Report 11153913 (Version 1)
Quarter: 2015Q2

REPORT INFORMATION
  Report Type: Spontaneous
  Country: US (occurrence: US)
  Receive Date: 20150602
  Receipt Date: 20150602
  Transmission Date: 20150821
  Serious: No
  Sender: FDA-Public Use
  Company Number: US-NOVEN PHARMACEUTICALS, INC.-14US010051

PATIENT
  Age: 3 Year
  Sex: Female

DRUGS (1)
  1. DAYTRANA [Suspect]
     Active Substance: METHYLPHENIDATE
     Indication: ACCIDENTAL EXPOSURE TO PRODUCT BY CHILD
     Dosage: 30 MG, UNKNOWN
     Route: 062

REACTIONS (2)
  - Accidental exposure to product by child [Unknown]
  - No adverse event [None]

NARRATIVE: CASE EVENT DATE: 20140809
